FAERS Safety Report 23055024 (Version 1)
Quarter: 2023Q4

REPORT INFORMATION
  Report Type: Spontaneous
  Country: US (occurrence: US)
  Receive Date: 20231011
  Receipt Date: 20231011
  Transmission Date: 20240110
  Serious: No
  Sender: FDA-Public Use
  Company Number: US-TEVA-2023-US-2931837

PATIENT

DRUGS (2)
  1. LIDOCAINE [Suspect]
     Active Substance: LIDOCAINE
     Indication: Pain
     Dosage: 5 %
     Route: 062
  2. LIDOCAINE [Suspect]
     Active Substance: LIDOCAINE
     Dosage: 5 %
     Route: 062

REACTIONS (2)
  - Drug ineffective [Unknown]
  - Product adhesion issue [Unknown]
